FAERS Safety Report 8977903 (Version 2)
Quarter: 2013Q3

REPORT INFORMATION
  Report Type: Report from Study
  Country: MX (occurrence: MX)
  Receive Date: 20121220
  Receipt Date: 20130812
  Transmission Date: 20140515
  Serious: Yes (Other)
  Sender: FDA-Public Use
  Company Number: PHHY2012MX117279

PATIENT
  Age: 64 Year
  Sex: Female

DRUGS (5)
  1. ACLASTA [Suspect]
     Indication: OSTEOPOROSIS
     Dosage: 5 MG/100ML, UNK
     Route: 042
     Dates: start: 2011
  2. ACLASTA [Suspect]
     Dosage: 5 MG/100ML, UNK
     Route: 042
     Dates: start: 201201
  3. VASCULFLOW [Concomitant]
     Dosage: 2 UKN, DAILY
  4. CHONDROITIN SULFATE [Concomitant]
     Dosage: UNK UKN, UNK
  5. DIACEREIN [Concomitant]
     Dosage: UNK UKN, UNK

REACTIONS (11)
  - Fracture [Recovered/Resolved]
  - Intervertebral disc protrusion [Not Recovered/Not Resolved]
  - Nerve root injury [Not Recovered/Not Resolved]
  - Pain [Not Recovered/Not Resolved]
  - Ligament sprain [Not Recovered/Not Resolved]
  - Face injury [Not Recovered/Not Resolved]
  - Rhinitis [Not Recovered/Not Resolved]
  - Fall [Not Recovered/Not Resolved]
  - Gait disturbance [Not Recovered/Not Resolved]
  - Feeling abnormal [Not Recovered/Not Resolved]
  - Intentional self-injury [Not Recovered/Not Resolved]
